FAERS Safety Report 13659457 (Version 1)
Quarter: 2017Q2

REPORT INFORMATION
  Report Type: Spontaneous
  Country: US (occurrence: US)
  Receive Date: 20170615
  Receipt Date: 20170615
  Transmission Date: 20170830
  Serious: Yes (Other)
  Sender: FDA-Public Use
  Company Number: None

PATIENT
  Age: 48 Year
  Sex: Male
  Weight: 119 kg

DRUGS (1)
  1. EXTRANEAL [Suspect]
     Active Substance: CALCIUM CHLORIDE\ICODEXTRIN\MAGNESIUM CHLORIDE\SODIUM CHLORIDE\SODIUM LACTATE
     Indication: PERITONEAL DIALYSIS
     Dosage: 2 1 LITRES DAILY INTRAPERITONEAL
     Route: 033
     Dates: start: 20170511, end: 20170518

REACTIONS (8)
  - Rash erythematous [None]
  - Gait disturbance [None]
  - Rash [None]
  - Skin exfoliation [None]
  - Paraesthesia [None]
  - Pruritus [None]
  - Blister [None]
  - Asthenia [None]

NARRATIVE: CASE EVENT DATE: 20170607
